FAERS Safety Report 5732922-3 (Version None)
Quarter: 2008Q2

REPORT INFORMATION
  Report Type: 
  Country: None (occurrence: None)
  Receive Date: 20080509
  Receipt Date: 20080328
  Transmission Date: 20081010
  Serious: No
  Sender: FDA-Public Use
  Company Number: A0718114A

PATIENT
  Age: 76 Year
  Sex: Female

DRUGS (4)
  1. COREG CR [Suspect]
     Indication: HYPERTENSION
     Dosage: 20MG PER DAY
     Route: 048
     Dates: start: 20070101
  2. TYKERB [Suspect]
     Indication: BREAST CANCER
     Dosage: 1250MG PER DAY
     Route: 048
     Dates: start: 20080318
  3. ISRADIPINE [Suspect]
     Indication: HYPERTENSION
     Dosage: 5MG TWICE PER DAY
     Route: 048
     Dates: start: 20070101
  4. NO CONCURRENT MEDICATION [Concomitant]

REACTIONS (5)
  - ACNE [None]
  - BLOOD PRESSURE FLUCTUATION [None]
  - EYELIDS PRURITUS [None]
  - FEELING HOT [None]
  - THERAPEUTIC RESPONSE UNEXPECTED [None]
